FAERS Safety Report 5571020-9 (Version None)
Quarter: 2007Q4

REPORT INFORMATION
  Report Type: 
  Country: None (occurrence: None)
  Receive Date: 20071219
  Receipt Date: 20071203
  Transmission Date: 20080405
  Serious: Yes (Death, Hospitalization, Other)
  Sender: FDA-Public Use
  Company Number: 2007100027

PATIENT
  Age: 45 Year
  Sex: Male
  Weight: 67.586 kg

DRUGS (2)
  1. SOMA [Suspect]
     Indication: BACK PAIN
  2. LORTAB [Suspect]
     Indication: BACK PAIN

REACTIONS (16)
  - ACUTE HEPATIC FAILURE [None]
  - ANOREXIA [None]
  - ASTHENIA [None]
  - CONVULSION [None]
  - DRUG ABUSER [None]
  - GASTROENTERITIS [None]
  - HEPATIC NECROSIS [None]
  - MALAISE [None]
  - MENTAL STATUS CHANGES [None]
  - METABOLIC ACIDOSIS [None]
  - METABOLIC DISORDER [None]
  - PANCREATITIS [None]
  - RENAL FAILURE [None]
  - SELF-MEDICATION [None]
  - SHOCK [None]
  - UNRESPONSIVE TO STIMULI [None]
